FAERS Safety Report 7471982-9 (Version None)
Quarter: 2011Q2

REPORT INFORMATION
  Report Type: 
  Country: None (occurrence: None)
  Receive Date: 20110511
  Receipt Date: 20100826
  Transmission Date: 20111010
  Serious: No
  Sender: FDA-Public Use
  Company Number: A0879033A

PATIENT
  Sex: Female

DRUGS (2)
  1. XELODA [Suspect]
     Dates: start: 20100730
  2. TYKERB [Suspect]
     Dosage: 1250MGD PER DAY
     Route: 048
     Dates: start: 20100730

REACTIONS (1)
  - CONSTIPATION [None]
